FAERS Safety Report 9882521 (Version 1)
Quarter: 2014Q1

REPORT INFORMATION
  Report Type: Spontaneous
  Country: US (occurrence: US)
  Receive Date: 20140207
  Receipt Date: 20140207
  Transmission Date: 20141002
  Serious: Yes (Other)
  Sender: FDA-Public Use
  Company Number: US-ACTAVIS-2014-01666

PATIENT
  Age: 93 Year
  Sex: Female

DRUGS (1)
  1. VERAPAMIL [Suspect]
     Indication: HYPERTENSION
     Dosage: 360 MG, DAILY
     Route: 048
     Dates: start: 20140127

REACTIONS (2)
  - Swelling face [Not Recovered/Not Resolved]
  - Blood pressure increased [Not Recovered/Not Resolved]
